FAERS Safety Report 22012202 (Version 1)
Quarter: 2023Q1

REPORT INFORMATION
  Report Type: Spontaneous
  Country: US (occurrence: US)
  Receive Date: 20230220
  Receipt Date: 20230220
  Transmission Date: 20230418
  Serious: Yes (Other)
  Sender: FDA-Public Use
  Company Number: US-PFIZER INC-202300071990

PATIENT
  Age: 63 Year
  Sex: Male

DRUGS (9)
  1. XELJANZ XR [Suspect]
     Active Substance: TOFACITINIB CITRATE
     Dosage: 11 MG, 1X/DAY (11 MG PER DAY ORALLY)
     Route: 048
  2. CARVEDILOL [Concomitant]
     Active Substance: CARVEDILOL
     Dosage: 1 DF, 2X/DAY (1 TABLET TWICE A DAY)
  3. AMLODIPINE BESYLATE [Concomitant]
     Active Substance: AMLODIPINE BESYLATE
     Dosage: 1 DF, DAILY (1 TABLET DAILY)
  4. FOLIC ACID [Concomitant]
     Active Substance: FOLIC ACID
     Dosage: 1 DF, DAILY (1 TABLET DAILY)
  5. LEVETIRACETAM [Concomitant]
     Active Substance: LEVETIRACETAM
     Dosage: UNK, DAILY (1 TABLET DAILY)
  6. IRBESARTAN [Concomitant]
     Active Substance: IRBESARTAN
     Dosage: IRBESARTAN 150 MG TABLET- 1 TABLET DAILY
  7. METHOTREXATE [Concomitant]
     Active Substance: METHOTREXATE
     Dosage: UNK, (8 TABLETS ONCE WEEKLY)
  8. OMEPRAZOLE [Concomitant]
     Active Substance: OMEPRAZOLE
     Dosage: UNK, DAILY (10 MG CAPSULE DR1 TABLET DAILY)
  9. ROSUVASTATIN CALCIUM [Concomitant]
     Active Substance: ROSUVASTATIN CALCIUM
     Dosage: UNK, (5 TABLETS DAILY IN PM)

REACTIONS (2)
  - Seizure [Not Recovered/Not Resolved]
  - Limb operation [Recovering/Resolving]

NARRATIVE: CASE EVENT DATE: 20200811
